FAERS Safety Report 10903195 (Version 1)
Quarter: 2015Q1

REPORT INFORMATION
  Report Type: Spontaneous
  Country: US (occurrence: US)
  Receive Date: 20150311
  Receipt Date: 20150311
  Transmission Date: 20150721
  Serious: Yes (Hospitalization)
  Sender: FDA-Public Use
  Company Number: US-ROCHE-1549293

PATIENT
  Sex: Female

DRUGS (1)
  1. BONIVA [Suspect]
     Active Substance: IBANDRONATE SODIUM
     Indication: OSTEOPOROSIS
     Dosage: SUBSEQUENTLY RECEIVED ON 26/JUN/2007, 21/AUG/2007, 16/OCT/2007, 11/DEC/2007, 12/FEB/2008, 10/JUN/200
     Route: 048
     Dates: start: 20070507

REACTIONS (1)
  - Pathological fracture [Unknown]
